FAERS Safety Report 13663868 (Version 2)
Quarter: 2017Q2

REPORT INFORMATION
  Report Type: Spontaneous
  Country: US (occurrence: US)
  Receive Date: 20170619
  Receipt Date: 20170619
  Transmission Date: 20170830
  Serious: Yes (Hospitalization, Other)
  Sender: FDA-Public Use
  Company Number: US-CIPLA LTD.-2017US10512

PATIENT

DRUGS (12)
  1. RISPERIDONE. [Suspect]
     Active Substance: RISPERIDONE
     Dosage: 3.5 MG, BID
     Route: 048
  2. AMANTADINE HYDROCHLORIDE. [Suspect]
     Active Substance: AMANTADINE HYDROCHLORIDE
     Dosage: 100 MG, BID
     Route: 048
  3. ASPIRIN. [Suspect]
     Active Substance: ASPIRIN
     Dosage: 81 MG, QD
     Route: 048
  4. LITHIUM. [Suspect]
     Active Substance: LITHIUM
     Indication: DELUSION
     Dosage: 450 MG, QHS OVER 7 TO 8 DAYS
     Route: 048
  5. LORAZEPAM. [Suspect]
     Active Substance: LORAZEPAM
     Dosage: 1 MG, BID
     Route: 048
  6. VALPROIC ACID. [Suspect]
     Active Substance: VALPROIC ACID
     Dosage: 250 MG, QD
     Route: 048
  7. LEVOTHYROXINE SODIUM. [Suspect]
     Active Substance: LEVOTHYROXINE SODIUM
     Dosage: 25 MCG, QD
     Route: 048
  8. GABAPENTIN. [Suspect]
     Active Substance: GABAPENTIN
     Dosage: 300 MG, QD
     Route: 048
  9. LITHIUM. [Suspect]
     Active Substance: LITHIUM
     Indication: AGITATION
     Dosage: 300 MG, BID
     Route: 048
  10. AMLODIPINE BESYLATE. [Suspect]
     Active Substance: AMLODIPINE BESYLATE
     Dosage: 5 MG, QD
     Route: 048
  11. DIVALPROEX SODIUM. [Suspect]
     Active Substance: DIVALPROEX SODIUM
     Dosage: 500 MG, BID
     Route: 048
  12. LITHIUM. [Suspect]
     Active Substance: LITHIUM
     Indication: SPEECH DISORDER

REACTIONS (6)
  - Delusion [Unknown]
  - Aphasia [Recovered/Resolved]
  - Speech disorder [Unknown]
  - Drug ineffective [Unknown]
  - Agitation [Unknown]
  - Toxicity to various agents [Recovered/Resolved]
